FAERS Safety Report 16923888 (Version 2)
Quarter: 2021Q4

REPORT INFORMATION
  Report Type: Spontaneous
  Country: FR (occurrence: FR)
  Receive Date: 20191016
  Receipt Date: 20211112
  Transmission Date: 20220303
  Serious: Yes (Life-Threatening, Hospitalization, Other)
  Sender: FDA-Public Use
  Company Number: FR-ACCORD-157849

PATIENT
  Age: 46 Year
  Sex: Female

DRUGS (1)
  1. ARIPIPRAZOLE [Suspect]
     Active Substance: ARIPIPRAZOLE
     Indication: Depression
     Dosage: SINCE 2 YEARS

REACTIONS (4)
  - Hyperlipidaemia [Unknown]
  - Acute respiratory failure [Unknown]
  - Diabetic ketoacidosis [Unknown]
  - Off label use [Unknown]
